FAERS Safety Report 5412753-4 (Version None)
Quarter: 2007Q3

REPORT INFORMATION
  Report Type: 
  Country: None (occurrence: None)
  Receive Date: 20070809
  Receipt Date: 20070803
  Transmission Date: 20080115
  Serious: Yes (Other)
  Sender: FDA-Public Use
  Company Number: 070099

PATIENT
  Sex: Male

DRUGS (1)
  1. HALFLYTELY [Suspect]
     Indication: COLONOSCOPY

REACTIONS (2)
  - FALL [None]
  - UPPER LIMB FRACTURE [None]
